FAERS Safety Report 4591244-7 (Version None)
Quarter: 2005Q1

REPORT INFORMATION
  Report Type: 
  Country: None (occurrence: None)
  Receive Date: 20050222
  Receipt Date: 20050210
  Transmission Date: 20050727
  Serious: Yes (Other)
  Sender: FDA-Public Use
  Company Number: 2005029333

PATIENT
  Age: 18 Year
  Sex: Female

DRUGS (1)
  1. GENOTROPIN [Suspect]
     Indication: ILL-DEFINED DISORDER
     Dosage: 12 MG (DAILY), SUBCUTANEOUS
     Route: 058
     Dates: start: 19990101

REACTIONS (2)
  - CORNEAL BLEEDING [None]
  - EYE HAEMORRHAGE [None]
